FAERS Safety Report 14805384 (Version 1)
Quarter: 2018Q2

REPORT INFORMATION
  Report Type: Spontaneous
  Country: US (occurrence: US)
  Receive Date: 20180425
  Receipt Date: 20180425
  Transmission Date: 20180711
  Serious: Yes (Other)
  Sender: FDA-Public Use
  Company Number: US-APOTEX-2018AP010914

PATIENT
  Age: 12 Year
  Sex: Female

DRUGS (8)
  1. DAPSONE. [Concomitant]
     Active Substance: DAPSONE
     Indication: ANTIBIOTIC PROPHYLAXIS
     Dosage: UNK
     Route: 065
  2. MYCOPHENOLATE [Suspect]
     Active Substance: MYCOPHENOLIC ACID
     Indication: PROPHYLAXIS AGAINST GRAFT VERSUS HOST DISEASE
     Dosage: UNK
     Route: 065
  3. TACROLIMUS. [Suspect]
     Active Substance: TACROLIMUS
     Indication: IMMUNOSUPPRESSION
     Dosage: UNK
     Route: 065
  4. MYCOPHENOLATE [Suspect]
     Active Substance: MYCOPHENOLIC ACID
     Indication: IMMUNOSUPPRESSION
  5. THYMOGLOBULIN [Suspect]
     Active Substance: LAPINE T-LYMPHOCYTE IMMUNE GLOBULIN
     Indication: IMMUNOSUPPRESSION
     Dosage: UNK
     Route: 065
  6. CLOTRIMAZOLE. [Concomitant]
     Active Substance: CLOTRIMAZOLE
     Indication: ANTIFUNGAL PROPHYLAXIS
     Dosage: UNK
     Route: 065
  7. VALGANCICLOVIR. [Concomitant]
     Active Substance: VALGANCICLOVIR
     Indication: ANTIVIRAL PROPHYLAXIS
     Dosage: UNK
     Route: 065
  8. CYCLOSPORINE. [Suspect]
     Active Substance: CYCLOSPORINE
     Indication: PROPHYLAXIS AGAINST GRAFT VERSUS HOST DISEASE
     Dosage: UNK
     Route: 065

REACTIONS (18)
  - Human herpesvirus 6 infection [Recovered/Resolved]
  - Fungal disease carrier [Unknown]
  - Adenovirus infection [Recovered/Resolved]
  - Viraemia [Recovered/Resolved]
  - Clostridium difficile colitis [Recovered/Resolved]
  - BK virus infection [Recovered/Resolved]
  - Posterior reversible encephalopathy syndrome [Unknown]
  - Drug ineffective [Unknown]
  - Cytomegalovirus viraemia [Unknown]
  - Renal impairment [Unknown]
  - Staphylococcal infection [Recovered/Resolved]
  - Hypertensive emergency [Unknown]
  - Bacteraemia [Recovered/Resolved]
  - Influenza [Recovered/Resolved]
  - Corynebacterium bacteraemia [Recovered/Resolved]
  - Cystitis haemorrhagic [Recovered/Resolved]
  - Fanconi syndrome [Unknown]
  - Epstein-Barr viraemia [Unknown]
